FAERS Safety Report 4278368-9 (Version None)
Quarter: 2004Q1

REPORT INFORMATION
  Report Type: 
  Country: None (occurrence: None)
  Receive Date: 20040123
  Receipt Date: 20040114
  Transmission Date: 20041129
  Serious: Yes (Other)
  Sender: FDA-Public Use
  Company Number: DE-ROCHE-355975

PATIENT
  Age: 74 Year
  Sex: Male

DRUGS (1)
  1. TAMIFLU [Suspect]
     Indication: INFECTION
     Route: 048
     Dates: start: 20031229, end: 20031231

REACTIONS (1)
  - ANGIONEUROTIC OEDEMA [None]
